FAERS Safety Report 4700469-9 (Version None)
Quarter: 2005Q3

REPORT INFORMATION
  Report Type: 
  Country: None (occurrence: None)
  Receive Date: 20050624
  Receipt Date: 20050614
  Transmission Date: 20060218
  Serious: Yes (Hospitalization, Other)
  Sender: FDA-Public Use
  Company Number: HQWYE485215JUN05

PATIENT
  Age: 65 Year
  Sex: Female

DRUGS (4)
  1. VENLAFAXINE HCL [Suspect]
     Indication: DEPRESSION
     Dosage: 50 MG 2X PER 1 DAY, ORAL
     Route: 048
     Dates: start: 20030101
  2. LEVOTHYROXINE SODIUM [Concomitant]
  3. PAROXETINE HCL [Concomitant]
  4. CO-DILATREND (CARVEDILOL/HYDROCHLOROTHIAZIDE, ) [Suspect]
     Dosage: 12.5 MG 1X PER 1 DAY, ORAL
     Route: 048

REACTIONS (1)
  - CIRCULATORY COLLAPSE [None]
